FAERS Safety Report 9728162 (Version 1)
Quarter: 2013Q4

REPORT INFORMATION
  Report Type: Spontaneous
  Country: GB (occurrence: GB)
  Receive Date: 20131204
  Receipt Date: 20131204
  Transmission Date: 20140711
  Serious: Yes (Hospitalization)
  Sender: FDA-Public Use
  Company Number: GB-ACCORD-020466

PATIENT
  Age: 65 Year
  Sex: Female
  Weight: 66.7 kg

DRUGS (4)
  1. IRINOTECAN HYDROCHLORIDE [Suspect]
     Indication: CHEMOTHERAPY
     Dates: start: 20131107, end: 20131107
  2. OXALIPLATIN [Concomitant]
     Indication: CHEMOTHERAPY
  3. FOLINIC ACID [Concomitant]
     Indication: CHEMOTHERAPY
  4. FLUOROURACIL [Concomitant]
     Indication: CHEMOTHERAPY

REACTIONS (3)
  - Hypoaesthesia oral [Unknown]
  - Paraesthesia [Unknown]
  - Dizziness [Unknown]
